FAERS Safety Report 12982430 (Version 1)
Quarter: 2016Q4

REPORT INFORMATION
  Report Type: Spontaneous
  Country: US (occurrence: US)
  Receive Date: 20161129
  Receipt Date: 20161129
  Transmission Date: 20170207
  Serious: No
  Sender: FDA-Public Use
  Company Number: US-PFIZER INC-2016540754

PATIENT
  Sex: Female

DRUGS (10)
  1. NORCO [Suspect]
     Active Substance: ACETAMINOPHEN\HYDROCODONE BITARTRATE
  2. NEXIUM [Suspect]
     Active Substance: ESOMEPRAZOLE MAGNESIUM
  3. PREMARIN [Suspect]
     Active Substance: ESTROGENS, CONJUGATED
     Dosage: 1X/DAY (STRENGTH: 0.625; DIRECTION: 1 Q DAY)
  4. LOPRESSOR [Suspect]
     Active Substance: METOPROLOL TARTRATE
  5. BACTRIM [Suspect]
     Active Substance: SULFAMETHOXAZOLE\TRIMETHOPRIM
  6. PROTONIX [Suspect]
     Active Substance: PANTOPRAZOLE SODIUM
     Dosage: 40 MG, 1X/DAY (1 Q DAY)
  7. CIPROFLOXACIN. [Suspect]
     Active Substance: CIPROFLOXACIN
  8. XANAX [Suspect]
     Active Substance: ALPRAZOLAM
  9. ASPIRIN /00346701/ [Suspect]
     Active Substance: ASCORBIC ACID\ASPIRIN
  10. KEFLEX [Suspect]
     Active Substance: CEPHALEXIN

REACTIONS (1)
  - Drug hypersensitivity [Unknown]
